FAERS Safety Report 16639593 (Version 1)
Quarter: 2019Q3

REPORT INFORMATION
  Report Type: Report from Study
  Country: None (occurrence: US)
  Receive Date: 20190726
  Receipt Date: 20190726
  Transmission Date: 20191004
  Serious: Yes (Other)
  Sender: FDA-Public Use
  Company Number: US-ABBVIE-19K-163-2866156-00

PATIENT
  Age: 75 Year
  Sex: Male

DRUGS (2)
  1. OMPRAZOLE [Concomitant]
     Active Substance: OMEPRAZOLE
     Indication: PRODUCT USED FOR UNKNOWN INDICATION
  2. VENCLEXTA [Suspect]
     Active Substance: VENETOCLAX
     Indication: CHRONIC LYMPHOCYTIC LEUKAEMIA
     Route: 048
     Dates: start: 201810, end: 20190526

REACTIONS (10)
  - Bacterial blepharitis [Recovering/Resolving]
  - Protein total decreased [Not Recovered/Not Resolved]
  - Weight decreased [Not Recovered/Not Resolved]
  - Hyperhidrosis [Not Recovered/Not Resolved]
  - Hernia [Unknown]
  - Cough [Not Recovered/Not Resolved]
  - Neoplasm skin [Recovered/Resolved]
  - Mycobacterium avium complex infection [Not Recovered/Not Resolved]
  - Body temperature increased [Recovered/Resolved]
  - Chills [Not Recovered/Not Resolved]

NARRATIVE: CASE EVENT DATE: 201907
